FAERS Safety Report 7575261-0 (Version None)
Quarter: 2011Q2

REPORT INFORMATION
  Report Type: 
  Country: None (occurrence: None)
  Receive Date: 20110627
  Receipt Date: 20110613
  Transmission Date: 20111010
  Serious: Yes (Other)
  Sender: FDA-Public Use
  Company Number: US-ELI_LILLY_AND_COMPANY-US201011003425

PATIENT
  Sex: Female

DRUGS (3)
  1. FORTEO [Suspect]
     Dosage: UNK, UNKNOWN
     Route: 065
  2. FORTEO [Suspect]
     Dosage: UNK, UNKNOWN
     Route: 065
  3. FORTEO [Suspect]
     Indication: OSTEOPOROSIS
     Dosage: UNK, UNKNOWN
     Route: 065

REACTIONS (10)
  - NASOPHARYNGITIS [None]
  - PYREXIA [None]
  - SURGERY [None]
  - BACK PAIN [None]
  - FALL [None]
  - OROPHARYNGEAL PAIN [None]
  - MUSCLE SPASMS [None]
  - ARTHROPATHY [None]
  - JOINT INJURY [None]
  - ARTHRALGIA [None]
